FAERS Safety Report 4808288-X (Version None)
Quarter: 2005Q4

REPORT INFORMATION
  Report Type: 
  Country: None (occurrence: None)
  Receive Date: 20051021
  Receipt Date: 20051007
  Transmission Date: 20060501
  Serious: Yes (Other)
  Sender: FDA-Public Use
  Company Number: 2005-DE-04136GD

PATIENT
  Age: 17 Year
  Sex: Male

DRUGS (4)
  1. SERTRALINE HCL [Suspect]
     Indication: DEPRESSIVE SYMPTOM
     Dosage: COMMENCED ON 50 MG WITH GRADUAL DOSE INCREASE TO 150 MG (NR), NR
  2. PSEUDOEPHEDRINE HCL [Suspect]
     Dosage: PO
     Route: 048
  3. DIAZEPAM [Suspect]
     Dosage: NR (NR); PO
     Route: 048
  4. ISOTRETINOIN [Suspect]
     Indication: ACNE
     Dosage: DOSES OF 0.63 MG/KG/DAY (INITIAL), FOLLOWED BY 0.32 MG/KG/DAY FOR 2 WEEKS, AND 1.0 MG/KG/DAY AFTER A

REACTIONS (13)
  - ALCOHOL USE [None]
  - ANGER [None]
  - APATHY [None]
  - DECREASED APPETITE [None]
  - DRY SKIN [None]
  - EDUCATIONAL PROBLEM [None]
  - INSOMNIA [None]
  - IRRITABILITY [None]
  - MAJOR DEPRESSION [None]
  - MOOD ALTERED [None]
  - MULTIPLE DRUG OVERDOSE [None]
  - SOCIAL AVOIDANT BEHAVIOUR [None]
  - SUICIDE ATTEMPT [None]
